FAERS Safety Report 5178234-0 (Version None)
Quarter: 2006Q4

REPORT INFORMATION
  Report Type: 
  Country: None (occurrence: None)
  Receive Date: 20061208
  Receipt Date: 20061127
  Transmission Date: 20070319
  Serious: Yes (Other)
  Sender: FDA-Public Use
  Company Number: GXKR2006IR07683

PATIENT
  Age: 52 Year
  Sex: Female

DRUGS (2)
  1. HYDROXYCHLOROQUINE SULFATE [Suspect]
     Indication: RHEUMATOID ARTHRITIS
     Dosage: UNK, UNK, UNK
  2. CHLOROQUINE PHOSPHATE [Suspect]
     Dosage: UNK, UNK, UNK

REACTIONS (5)
  - BLISTER [None]
  - PEMPHIGUS [None]
  - POST INFLAMMATORY PIGMENTATION CHANGE [None]
  - SKIN EROSION [None]
  - URTICARIA [None]
